FAERS Safety Report 6814119 (Version 2)
Quarter: 2022Q1

REPORT INFORMATION
  Report Type: Report from Study
  Country: US (occurrence: US)
  Receive Date: 20081117
  Receipt Date: 20220119
  Transmission Date: 20220424
  Serious: Yes (Hospitalization)
  Sender: FDA-Public Use
  Company Number: US-PFIZER INC-2008092961

PATIENT
  Age: 41 Year
  Sex: Male
  Weight: 55.4 kg

DRUGS (3)
  1. SUTENT [Suspect]
     Active Substance: SUNITINIB MALATE
     Indication: Medullary thyroid cancer
     Dosage: DAILY X 4 WEEKS WITH 2 WEEKS OFF
     Route: 048
     Dates: start: 20080131, end: 20080509
  2. DIFLUCAN [Concomitant]
     Active Substance: FLUCONAZOLE
     Dosage: UNK
  3. FLEXERIL [Concomitant]
     Active Substance: CYCLOBENZAPRINE HYDROCHLORIDE
     Dosage: UNK

REACTIONS (7)
  - Oral pain [Recovered/Resolved]
  - Oesophageal perforation [Recovered/Resolved]
  - Pharyngitis [Recovered/Resolved]
  - Osteomyelitis [Recovered/Resolved]
  - Peripheral motor neuropathy [Recovered/Resolved]
  - Myelitis [Recovered/Resolved]
  - Dehydration [Recovered/Resolved]

NARRATIVE: CASE EVENT DATE: 20080513
